FAERS Safety Report 5878633-5 (Version None)
Quarter: 2008Q3

REPORT INFORMATION
  Report Type: 
  Country: None (occurrence: None)
  Receive Date: 20080909
  Receipt Date: 20080901
  Transmission Date: 20090109
  Serious: Yes (Hospitalization)
  Sender: FDA-Public Use
  Company Number: TPG2008A00999

PATIENT
  Age: 61 Year
  Sex: Female

DRUGS (1)
  1. COMPETACT (PIOGLITAZONE HYDROCHLORIDE, METFORMIN HYDROCHLORIDE) [Suspect]
     Indication: TYPE 2 DIABETES MELLITUS
     Dosage: 15 MG PIOGLITAZONE / 850 MG METFORMIN PER ORAL
     Route: 048
     Dates: start: 20071101

REACTIONS (3)
  - ANKLE FRACTURE [None]
  - FALL [None]
  - OSTEOPENIA [None]
